FAERS Safety Report 13014164 (Version 1)
Quarter: 2016Q4

REPORT INFORMATION
  Report Type: Spontaneous
  Country: FR (occurrence: FR)
  Receive Date: 20161209
  Receipt Date: 20161209
  Transmission Date: 20170207
  Serious: Yes (Other)
  Sender: FDA-Public Use
  Company Number: FR-CELLTRION INC.-2016FR012812

PATIENT

DRUGS (1)
  1. INFLECTRA [Suspect]
     Active Substance: INFLIXIMAB-DYYB
     Indication: ANKYLOSING SPONDYLITIS
     Dosage: 5 MG/KG, UNK
     Route: 042
     Dates: start: 20160708, end: 20160826

REACTIONS (6)
  - Dyspepsia [Unknown]
  - Gastrointestinal motility disorder [Unknown]
  - Abdominal pain [Unknown]
  - Nausea [Unknown]
  - Migraine [Recovered/Resolved]
  - Drug ineffective [Not Recovered/Not Resolved]

NARRATIVE: CASE EVENT DATE: 20160708
